FAERS Safety Report 8424372-6 (Version None)
Quarter: 2012Q2

REPORT INFORMATION
  Report Type: 
  Country: None (occurrence: None)
  Receive Date: 20120608
  Receipt Date: 20110927
  Transmission Date: 20120825
  Serious: No
  Sender: FDA-Public Use
  Company Number: US-ASTRAZENECA-2011SE58442

PATIENT
  Age: 82 Year
  Sex: Female

DRUGS (2)
  1. PULMICORT FLEXHALER [Suspect]
     Route: 055
  2. CRESTOR [Suspect]
     Route: 048

REACTIONS (2)
  - TREMOR [None]
  - NERVE COMPRESSION [None]
